FAERS Safety Report 24720890 (Version 3)
Quarter: 2025Q3

REPORT INFORMATION
  Report Type: Report from Study
  Country: US (occurrence: US)
  Receive Date: 20241211
  Receipt Date: 20250924
  Transmission Date: 20251020
  Serious: No
  Sender: TAKEDA
  Company Number: US-TAKEDA-2024TUS123183

PATIENT
  Age: 56 Year
  Sex: Female

DRUGS (3)
  1. LANADELUMAB [Suspect]
     Active Substance: LANADELUMAB
     Indication: Hereditary angioedema
     Dosage: 300 MILLIGRAM, Q2WEEKS
  2. LANADELUMAB [Suspect]
     Active Substance: LANADELUMAB
     Indication: Immune system disorder
     Dosage: UNK, Q2WEEKS
  3. LANADELUMAB [Suspect]
     Active Substance: LANADELUMAB

REACTIONS (4)
  - Inappropriate schedule of product administration [Unknown]
  - Product dose omission in error [Unknown]
  - Hereditary angioedema [Unknown]
  - Product dose omission issue [Unknown]

NARRATIVE: CASE EVENT DATE: 20250913
